FAERS Safety Report 12728811 (Version 8)
Quarter: 2019Q3

REPORT INFORMATION
  Report Type: Spontaneous
  Country: US (occurrence: US)
  Receive Date: 20160909
  Receipt Date: 20190808
  Transmission Date: 20191004
  Serious: Yes (Hospitalization)
  Sender: FDA-Public Use
  Company Number: US-ACTELION-A-US2016-141674

PATIENT
  Sex: Female
  Weight: 51.25 kg

DRUGS (9)
  1. ADCIRCA [Concomitant]
     Active Substance: TADALAFIL
  2. LETAIRIS [Concomitant]
     Active Substance: AMBRISENTAN
  3. UPTRAVI [Suspect]
     Active Substance: SELEXIPAG
     Dosage: 1600 MCG, BID
     Route: 048
  4. UPTRAVI [Suspect]
     Active Substance: SELEXIPAG
     Dosage: UNK
     Route: 048
  5. UPTRAVI [Suspect]
     Active Substance: SELEXIPAG
     Dosage: 1400 MCG, BID
     Route: 048
  6. UPTRAVI [Suspect]
     Active Substance: SELEXIPAG
     Dosage: 1200 MCG, BID
     Route: 048
  7. UPTRAVI [Suspect]
     Active Substance: SELEXIPAG
     Indication: PULMONARY HYPERTENSION
     Dosage: 1000 MCG, BID
     Route: 048
     Dates: start: 20160510
  8. OPSUMIT [Suspect]
     Active Substance: MACITENTAN
     Indication: PULMONARY HYPERTENSION
     Dosage: 10 MG, QD
     Route: 048
     Dates: start: 20150501
  9. COUMADIN [Concomitant]
     Active Substance: WARFARIN SODIUM

REACTIONS (12)
  - Blood creatine increased [Unknown]
  - Dizziness [Unknown]
  - Pain in jaw [Unknown]
  - Pulmonary arterial pressure increased [Unknown]
  - Muscle spasms [Unknown]
  - Systemic lupus erythematosus [Unknown]
  - Decreased appetite [Unknown]
  - Facial pain [Unknown]
  - Loss of consciousness [Unknown]
  - Sinusitis [Unknown]
  - Oral pain [Unknown]
  - Hospitalisation [Unknown]
